APPROVED DRUG PRODUCT: PENICILLIN G POTASSIUM
Active Ingredient: PENICILLIN G POTASSIUM
Strength: 500,000 UNITS/VIAL
Dosage Form/Route: INJECTABLE;INJECTION
Application: A060806 | Product #001
Applicant: CONSOLIDATED PHARMACEUTICAL GROUP INC
Approved: Approved Prior to Jan 1, 1982 | RLD: No | RS: No | Type: DISCN